FAERS Safety Report 10920791 (Version 1)
Quarter: 2015Q1

REPORT INFORMATION
  Report Type: Spontaneous
  Country: KR (occurrence: KR)
  Receive Date: 20150317
  Receipt Date: 20150317
  Transmission Date: 20150721
  Serious: Yes (Hospitalization)
  Sender: FDA-Public Use
  Company Number: KR-AMGEN-KORCT2015024219

PATIENT
  Age: 66 Year
  Sex: Male
  Weight: 60.1 kg

DRUGS (21)
  1. G-LASTA [Suspect]
     Active Substance: PEGFILGRASTIM
     Indication: FEBRILE NEUTROPENIA
     Dosage: 6 MG, 1X/3WEEKS
     Route: 058
     Dates: start: 20150114, end: 20150114
  2. VINCRISTINE [Concomitant]
     Active Substance: VINCRISTINE
     Dosage: 2 MG, UNK
     Route: 042
     Dates: start: 20150203, end: 20150203
  3. FAMOTIDINE. [Concomitant]
     Active Substance: FAMOTIDINE
     Dosage: 20 MG, UNK
     Route: 048
     Dates: start: 20150115, end: 20150122
  4. METOCLOPRAMIDE HYDROCHLORIDE. [Concomitant]
     Active Substance: METOCLOPRAMIDE HYDROCHLORIDE
     Dosage: 30 MG, UNK
     Route: 042
     Dates: start: 20150110, end: 20150114
  5. COTRIMOXAZOLE [Concomitant]
     Active Substance: SULFAMETHOXAZOLE\TRIMETHOPRIM
     Dosage: 480 MG, 1 TAB, UNK
     Route: 048
     Dates: start: 20150122
  6. APREPITANT. [Concomitant]
     Active Substance: APREPITANT
     Dosage: 80 MG, UNK
     Route: 048
     Dates: start: 20150114, end: 20150115
  7. GRANISETRON [Concomitant]
     Active Substance: GRANISETRON
     Dosage: 1 PATCH, UNK
     Route: 061
     Dates: start: 20150112, end: 20150119
  8. DOXORUBICIN [Concomitant]
     Active Substance: DOXORUBICIN
     Dosage: 80 MG, UNK
     Route: 042
     Dates: start: 20150203, end: 20150203
  9. G-LASTA [Suspect]
     Active Substance: PEGFILGRASTIM
     Dosage: 6 MG, 1X/3WEEKS
     Route: 058
     Dates: start: 20150204, end: 20150204
  10. VINCRISTINE [Concomitant]
     Active Substance: VINCRISTINE
     Dosage: 2 MG, UNK
     Route: 042
     Dates: start: 20150113, end: 20150113
  11. PREDNISOLONE. [Concomitant]
     Active Substance: PREDNISOLONE
     Dosage: 70 MG, UNK
     Route: 048
     Dates: start: 20150113, end: 20150117
  12. PREDNISOLONE. [Concomitant]
     Active Substance: PREDNISOLONE
     Dosage: 70 MG, UNK
     Route: 048
     Dates: start: 20150203, end: 20150207
  13. TNA PERI [Concomitant]
     Dosage: 1680 ML, UNK
     Route: 042
     Dates: start: 20150109, end: 20150114
  14. CYCLOPHOSPHAMIDE. [Concomitant]
     Active Substance: CYCLOPHOSPHAMIDE
     Dosage: 1260 MG, UNK
     Route: 042
     Dates: start: 20150113, end: 20150113
  15. CYCLOPHOSPHAMIDE. [Concomitant]
     Active Substance: CYCLOPHOSPHAMIDE
     Dosage: 1260 MG, UNK
     Route: 042
     Dates: start: 20150203, end: 20150203
  16. DOXORUBICIN [Concomitant]
     Active Substance: DOXORUBICIN
     Dosage: 80 MG, UNK
     Route: 042
     Dates: start: 20150113, end: 20150113
  17. MOSAPRIDE CITRATE [Concomitant]
     Active Substance: MOSAPRIDE CITRATE
     Dosage: 15 MG, UNK
     Route: 048
     Dates: start: 20141212
  18. FLUCONAZOLE. [Concomitant]
     Active Substance: FLUCONAZOLE
     Dosage: 200 MG, UNK
     Route: 048
     Dates: start: 20150122
  19. ESOMEPRAZOLE [Concomitant]
     Active Substance: ESOMEPRAZOLE
     Dosage: 20 MG, UNK
     Route: 048
     Dates: start: 20150122
  20. MEGESTROL ACETATE. [Concomitant]
     Active Substance: MEGESTROL ACETATE
     Dosage: 1 PACK, UNK
     Route: 048
     Dates: start: 20150122
  21. ILAPRAZOLE [Concomitant]
     Dosage: 20 MG, UNK
     Route: 048
     Dates: start: 20141212

REACTIONS (1)
  - Febrile neutropenia [Recovered/Resolved]

NARRATIVE: CASE EVENT DATE: 20150210
